FAERS Safety Report 19313634 (Version 5)
Quarter: 2022Q1

REPORT INFORMATION
  Report Type: Spontaneous
  Country: US (occurrence: US)
  Receive Date: 20210527
  Receipt Date: 20220225
  Transmission Date: 20220423
  Serious: No
  Sender: FDA-Public Use
  Company Number: US-BRISTOL-MYERS SQUIBB COMPANY-BMS-2021-051655

PATIENT
  Age: 53 Year
  Sex: Female

DRUGS (4)
  1. ORENCIA [Suspect]
     Active Substance: ABATACEPT
     Indication: Arthropathy
     Dosage: 125 MILLIGRAM, QWK
     Route: 058
     Dates: start: 20160720
  2. ORENCIA [Suspect]
     Active Substance: ABATACEPT
     Indication: Arthropathy
     Dosage: 125 MILLIGRAM, QWK
     Route: 058
     Dates: start: 20160720
  3. ORENCIA [Suspect]
     Active Substance: ABATACEPT
     Indication: Osteoporosis
  4. ORENCIA [Suspect]
     Active Substance: ABATACEPT
     Indication: Osteoporosis

REACTIONS (3)
  - Arthralgia [Unknown]
  - Joint swelling [Unknown]
  - Arthritis [Unknown]
